FAERS Safety Report 7451382-8 (Version None)
Quarter: 2011Q2

REPORT INFORMATION
  Report Type: 
  Country: None (occurrence: None)
  Receive Date: 20110422
  Receipt Date: 20110408
  Transmission Date: 20111010
  Serious: Yes (Other)
  Sender: FDA-Public Use
  Company Number: 030753

PATIENT
  Sex: Female
  Weight: 86.2 kg

DRUGS (8)
  1. LOTENSIN /00909102/ [Concomitant]
  2. FOLIC ACID [Concomitant]
  3. HYDROCHLOROTHIAZIDE [Concomitant]
  4. METHOTREXATE [Concomitant]
  5. PRILOSEC [Concomitant]
  6. CIMZIA [Suspect]
     Indication: RHEUMATOID ARTHRITIS
     Dosage: SEE IMAGE
     Route: 058
     Dates: start: 20110201, end: 20110101
  7. CIMZIA [Suspect]
     Indication: RHEUMATOID ARTHRITIS
     Dosage: SEE IMAGE
     Route: 058
     Dates: start: 20110301, end: 20110401
  8. SYNTHROID [Concomitant]

REACTIONS (1)
  - PSORIASIS [None]
